FAERS Safety Report 9457245 (Version 2)
Quarter: 2013Q3

REPORT INFORMATION
  Report Type: Spontaneous
  Country: US (occurrence: US)
  Receive Date: 20130814
  Receipt Date: 20130930
  Transmission Date: 20140515
  Serious: No
  Sender: FDA-Public Use
  Company Number: US-009507513-1308USA003018

PATIENT
  Sex: Male

DRUGS (1)
  1. INTEGRILIN [Suspect]
     Indication: PROPHYLAXIS
     Dosage: UNK

REACTIONS (1)
  - Haematuria [Unknown]
